FAERS Safety Report 23453522 (Version 1)
Quarter: 2024Q1

REPORT INFORMATION
  Report Type: Report from Study
  Country: JP (occurrence: JP)
  Receive Date: 20240129
  Receipt Date: 20240129
  Transmission Date: 20240409
  Serious: Yes (Hospitalization)
  Sender: FDA-Public Use
  Company Number: JP-BAUSCH-BL-2024-001320

PATIENT
  Age: 64 Year
  Sex: Male

DRUGS (2)
  1. BEXAROTENE [Suspect]
     Active Substance: BEXAROTENE
     Indication: Cutaneous T-cell lymphoma
     Route: 048
     Dates: start: 20180629, end: 20190403
  2. BEXAROTENE [Suspect]
     Active Substance: BEXAROTENE
     Route: 048
     Dates: start: 20190507, end: 20190513

REACTIONS (8)
  - Diplopia [Unknown]
  - Dizziness [Unknown]
  - Inappropriate antidiuretic hormone secretion [Unknown]
  - Malignant neoplasm progression [Unknown]
  - Hypothyroidism [Unknown]
  - Hypertriglyceridaemia [Unknown]
  - Neutropenia [Unknown]
  - Blood creatine phosphokinase increased [Unknown]

NARRATIVE: CASE EVENT DATE: 20190401
